FAERS Safety Report 18238342 (Version 11)
Quarter: 2022Q4

REPORT INFORMATION
  Report Type: Spontaneous
  Country: US (occurrence: US)
  Receive Date: 20200907
  Receipt Date: 20221101
  Transmission Date: 20230113
  Serious: Yes (Other)
  Sender: FDA-Public Use
  Company Number: US-PFIZER INC-2020343038

PATIENT
  Age: 66 Year
  Sex: Female

DRUGS (4)
  1. EUCRISA [Suspect]
     Active Substance: CRISABOROLE
     Dosage: UNK, 2X/DAY (DAILY AT NIGHT AND EVERY MORNING)
  2. EUCRISA [Suspect]
     Active Substance: CRISABOROLE
     Dosage: UNK, DAILY (APPLY DAILY TO AFFECTED AREA(S))
  3. EUCRISA [Suspect]
     Active Substance: CRISABOROLE
     Dosage: UNK, AS NEEDED (APPLY TO AFFECTED AREAS ON THE BODY 2X DAILY PRN)
  4. CLINDAMYCIN HYDROCHLORIDE [Concomitant]
     Active Substance: CLINDAMYCIN HYDROCHLORIDE
     Indication: Sinusitis
     Dosage: UNK

REACTIONS (5)
  - Foot operation [Unknown]
  - Off label use [Unknown]
  - Rash maculo-papular [Unknown]
  - Pruritus [Unknown]
  - Pain [Unknown]
